FAERS Safety Report 12777935 (Version 2)
Quarter: 2018Q2

REPORT INFORMATION
  Report Type: Spontaneous
  Country: US (occurrence: US)
  Receive Date: 20160924
  Receipt Date: 20180409
  Transmission Date: 20180711
  Serious: No
  Sender: FDA-Public Use
  Company Number: US-JAZZ-2016-US-010919

PATIENT
  Sex: Male

DRUGS (33)
  1. XYREM [Suspect]
     Active Substance: SODIUM OXYBATE
     Indication: NARCOLEPSY
     Dosage: 4.5 G, BID
     Route: 048
     Dates: start: 201212, end: 201411
  2. XYREM [Suspect]
     Active Substance: SODIUM OXYBATE
     Dosage: 4.5 G, BID
     Route: 048
     Dates: start: 201602
  3. PRAVASTATIN. [Concomitant]
     Active Substance: PRAVASTATIN
  4. ADDERALL [Concomitant]
     Active Substance: AMPHETAMINE ASPARTATE\AMPHETAMINE SULFATE\DEXTROAMPHETAMINE SACCHARATE\DEXTROAMPHETAMINE SULFATE
  5. AREDSAN [Concomitant]
  6. VITAMIN B-1 [Concomitant]
     Active Substance: THIAMINE
  7. SODIUM CHLORIDE. [Concomitant]
     Active Substance: SODIUM CHLORIDE
  8. TRETINOIN. [Concomitant]
     Active Substance: TRETINOIN
  9. CLINDAMYCIN PH [Concomitant]
  10. IMITREX [Concomitant]
     Active Substance: SUMATRIPTAN SUCCINATE
  11. CIALIS [Concomitant]
     Active Substance: TADALAFIL
  12. OXYCODONE AND ACETAMINOPHEN [Concomitant]
     Active Substance: ACETAMINOPHEN\OXYCODONE HYDROCHLORIDE
  13. PROVIGIL [Concomitant]
     Active Substance: MODAFINIL
  14. VITAMIN D [Concomitant]
     Active Substance: CHOLECALCIFEROL
  15. BENADRYL ALLERGY [Concomitant]
     Active Substance: DIPHENHYDRAMINE HYDROCHLORIDE
  16. CROMOLYN SODIUM. [Concomitant]
     Active Substance: CROMOLYN SODIUM
  17. IRON [Concomitant]
     Active Substance: IRON
  18. VITAMIN C TR [Concomitant]
  19. DESOXYN [Concomitant]
     Active Substance: METHAMPHETAMINE HYDROCHLORIDE
  20. SINGULAIR [Concomitant]
     Active Substance: MONTELUKAST SODIUM
  21. LORATADINE. [Concomitant]
     Active Substance: LORATADINE
  22. VITAMIN A [Concomitant]
     Active Substance: VITAMIN A
  23. XYREM [Suspect]
     Active Substance: SODIUM OXYBATE
     Indication: CATAPLEXY
     Dosage: DOSE ADJUSTMENTS
     Route: 048
     Dates: start: 201411, end: 201602
  24. LEVOTHYROXINE. [Concomitant]
     Active Substance: LEVOTHYROXINE
  25. FLUTICASONE PROPIONATE. [Concomitant]
     Active Substance: FLUTICASONE PROPIONATE
  26. ATENOLOL. [Concomitant]
     Active Substance: ATENOLOL
  27. PROBIOTIC [Concomitant]
     Active Substance: PROBIOTICS NOS
  28. QNASL [Concomitant]
     Active Substance: BECLOMETHASONE DIPROPIONATE
  29. L-CARNITINE [Concomitant]
     Active Substance: LEVOCARNITINE
  30. PREVACID [Concomitant]
     Active Substance: LANSOPRAZOLE
  31. CALCIUM ACETATE. [Concomitant]
     Active Substance: CALCIUM ACETATE
  32. PREVACID [Concomitant]
     Active Substance: LANSOPRAZOLE
  33. POTASSIUM CITRATE ER [Concomitant]

REACTIONS (1)
  - No adverse event [Unknown]
